FAERS Safety Report 6665215-0 (Version None)
Quarter: 2010Q1

REPORT INFORMATION
  Report Type: 
  Country: None (occurrence: None)
  Receive Date: 20100330
  Receipt Date: 20100318
  Transmission Date: 20100710
  Serious: Yes (Hospitalization)
  Sender: FDA-Public Use
  Company Number: 009127

PATIENT
  Sex: Female

DRUGS (2)
  1. CERTOLIZUMAB PEGOL (CERTOLIZUMAB PEGOL) [Suspect]
     Indication: RHEUMATOID ARTHRITIS
     Dosage: 400 MG 1X/ 2WEEKS, CDP870-050 SUBCUTANEOUS), 400 MG 1X/2WEEKS SUBCUTANEOUS
     Route: 058
     Dates: start: 20051226, end: 20060613
  2. CERTOLIZUMAB PEGOL (CERTOLIZUMAB PEGOL) [Suspect]
     Indication: RHEUMATOID ARTHRITIS
     Dosage: 400 MG 1X/ 2WEEKS, CDP870-050 SUBCUTANEOUS), 400 MG 1X/2WEEKS SUBCUTANEOUS
     Route: 058
     Dates: start: 20060613

REACTIONS (2)
  - FALL [None]
  - LOSS OF CONSCIOUSNESS [None]
